FAERS Safety Report 16291579 (Version 2)
Quarter: 2019Q2

REPORT INFORMATION
  Report Type: Spontaneous
  Country: SE (occurrence: SE)
  Receive Date: 20190509
  Receipt Date: 20190603
  Transmission Date: 20190711
  Serious: Yes (Hospitalization)
  Sender: FDA-Public Use
  Company Number: SE-TEVA-2019-SE-1046922

PATIENT
  Age: 80 Year
  Sex: Male

DRUGS (2)
  1. OXYCODONE [Suspect]
     Active Substance: OXYCODONE
     Route: 065
  2. FENTANYL TRANSDERMAL SYSTEM [Suspect]
     Active Substance: FENTANYL
     Dosage: 50 MICROG/HOUR, PATCH ON THE LEFT ARM
     Route: 062

REACTIONS (7)
  - Nausea [Unknown]
  - Depressed level of consciousness [Recovered/Resolved]
  - Respiratory rate decreased [Recovered/Resolved]
  - Miosis [Unknown]
  - Somnolence [Recovered/Resolved]
  - Toxicity to various agents [Recovering/Resolving]
  - Product use in unapproved therapeutic environment [Unknown]
